FAERS Safety Report 22348139 (Version 1)
Quarter: 2023Q2

REPORT INFORMATION
  Report Type: Report from Study
  Country: US (occurrence: US)
  Receive Date: 20230522
  Receipt Date: 20230522
  Transmission Date: 20230722
  Serious: Yes (Other)
  Sender: FDA-Public Use
  Company Number: US-ABBVIE-4329102

PATIENT
  Age: 53 Year
  Sex: Female

DRUGS (4)
  1. SKYRIZI [Suspect]
     Active Substance: RISANKIZUMAB-RZAA
     Indication: Crohn^s disease
     Route: 042
     Dates: start: 20230227
  2. SINGULAIR [Concomitant]
     Active Substance: MONTELUKAST SODIUM
     Indication: Asthma
     Route: 048
  3. BUDESONIDE [Concomitant]
     Active Substance: BUDESONIDE
     Indication: Crohn^s disease
     Route: 048
     Dates: start: 2022
  4. SYNTHROID [Concomitant]
     Active Substance: LEVOTHYROXINE SODIUM
     Indication: Thyroid disorder
     Route: 048
     Dates: start: 2004

REACTIONS (9)
  - Dizziness [Recovered/Resolved]
  - Blood pressure decreased [Unknown]
  - Gingival swelling [Unknown]
  - Throat irritation [Unknown]
  - Chills [Unknown]
  - Ear discomfort [Unknown]
  - Nausea [Unknown]
  - Throat tightness [Unknown]
  - Dizziness [Unknown]

NARRATIVE: CASE EVENT DATE: 20230227
